FAERS Safety Report 8715973 (Version 2)
Quarter: 2013Q1

REPORT INFORMATION
  Report Type: Report from Study
  Country: BE (occurrence: BE)
  Receive Date: 20120809
  Receipt Date: 20130313
  Transmission Date: 20140127
  Serious: Yes (Hospitalization)
  Sender: FDA-Public Use
  Company Number: BE-B.I. PHARMACEUTICALS,INC./RIDGEFIELD-2012-BL-00453BL

PATIENT
  Age: 64 Year
  Sex: Male
  Weight: 97 kg

DRUGS (8)
  1. PRADAXA [Suspect]
     Indication: ATRIAL FIBRILLATION
     Dosage: 300 MG
     Route: 048
     Dates: start: 20111213
  2. SELOZOK [Concomitant]
     Dosage: 100 MG
     Route: 048
  3. CORDARONE [Concomitant]
     Dosage: 200 MG
     Route: 048
     Dates: start: 1993
  4. CARDIOASPIRINE [Concomitant]
     Dosage: 100 MG
     Route: 048
     Dates: start: 20091216
  5. ALDACTONE [Concomitant]
     Dosage: 50 MG
     Route: 048
     Dates: start: 20091203
  6. METFORMINE [Concomitant]
     Dosage: 1700 MG
     Route: 048
     Dates: start: 201003
  7. BURINEX [Concomitant]
     Dosage: 2.5 MG
     Route: 048
  8. PANTOPRAZOLE [Concomitant]
     Dosage: 80 MG
     Route: 048

REACTIONS (4)
  - Atrial fibrillation [Not Recovered/Not Resolved]
  - Dyspepsia [Unknown]
  - Abdominal pain upper [Unknown]
  - Intracardiac thrombus [Unknown]
